FAERS Safety Report 10730244 (Version 7)
Quarter: 2016Q1

REPORT INFORMATION
  Report Type: Spontaneous
  Country: US (occurrence: US)
  Receive Date: 20150122
  Receipt Date: 20160226
  Transmission Date: 20160525
  Serious: Yes (Hospitalization, Disabling, Other)
  Sender: FDA-Public Use
  Company Number: US-009507513-1501USA008011

PATIENT
  Sex: Female
  Weight: 82.99 kg

DRUGS (12)
  1. ALENDRONATE SODIUM. [Suspect]
     Active Substance: ALENDRONATE SODIUM
     Indication: OSTEOPENIA
     Dosage: 70 MG, QW
     Route: 048
     Dates: start: 20080321, end: 20130330
  2. GNC GLUCOSAMINE CHONDROTIN [Concomitant]
     Indication: PRODUCT USED FOR UNKNOWN INDICATION
     Dosage: 1200 MG, BID
     Route: 065
     Dates: start: 2000
  3. ALENDRONATE SODIUM. [Suspect]
     Active Substance: ALENDRONATE SODIUM
     Indication: OSTEOPENIA
     Dosage: 70 MG, QW
     Route: 048
     Dates: start: 20080321, end: 20130330
  4. FLAXSEED [Concomitant]
     Active Substance: FLAX SEED
     Indication: PRODUCT USED FOR UNKNOWN INDICATION
     Dosage: 1400 MG, BID
     Route: 065
     Dates: start: 2000
  5. ALENDRONATE SODIUM. [Suspect]
     Active Substance: ALENDRONATE SODIUM
     Indication: OSTEOPENIA
     Dosage: 70 MG, QW
     Route: 048
     Dates: start: 20080321, end: 20130330
  6. CYANOCOBALAMIN. [Concomitant]
     Active Substance: CYANOCOBALAMIN
     Indication: PRODUCT USED FOR UNKNOWN INDICATION
     Dosage: 2500 MICROGRAM, QD
     Route: 065
     Dates: start: 2000
  7. VITAMIN D [Concomitant]
     Active Substance: CHOLECALCIFEROL
     Indication: PRODUCT USED FOR UNKNOWN INDICATION
     Dosage: 1000 IU, BID
     Route: 065
     Dates: start: 2000
  8. BIOTIN [Concomitant]
     Active Substance: BIOTIN
     Indication: PRODUCT USED FOR UNKNOWN INDICATION
     Dosage: 5000 MICROGRAM, QD
     Route: 065
     Dates: start: 2000
  9. BENADRYL [Concomitant]
     Active Substance: DIPHENHYDRAMINE HYDROCHLORIDE
     Indication: PRODUCT USED FOR UNKNOWN INDICATION
     Dosage: 25 MG, BID
     Route: 065
     Dates: start: 2000
  10. FOSAMAX [Suspect]
     Active Substance: ALENDRONATE SODIUM
     Indication: OSTEOPENIA
     Dosage: 10 MG, QD
     Route: 048
     Dates: start: 199806, end: 20011026
  11. FOSAMAX [Suspect]
     Active Substance: ALENDRONATE SODIUM
     Dosage: 70 MG, QW
     Route: 048
     Dates: start: 20011027, end: 20080320
  12. ALENDRONATE SODIUM. [Suspect]
     Active Substance: ALENDRONATE SODIUM
     Indication: OSTEOPENIA
     Dosage: 70 MG, QW
     Route: 048
     Dates: start: 20080321, end: 20130330

REACTIONS (41)
  - Breast cancer female [Unknown]
  - Bone disorder [Unknown]
  - Bone operation [Unknown]
  - Incontinence [Unknown]
  - Rhinorrhoea [Unknown]
  - Myalgia [Unknown]
  - Arthralgia [Not Recovered/Not Resolved]
  - Back disorder [Not Recovered/Not Resolved]
  - Colitis ischaemic [Unknown]
  - Surgery [Unknown]
  - Glucose tolerance impaired [Unknown]
  - Neoplasm [Unknown]
  - Diverticulum [Unknown]
  - Dyspnoea [Unknown]
  - Lumbar spinal stenosis [Unknown]
  - Carpal tunnel syndrome [Unknown]
  - Limb operation [Unknown]
  - Foot operation [Unknown]
  - Basal cell carcinoma [Unknown]
  - Femur fracture [Not Recovered/Not Resolved]
  - Hypothyroidism [Unknown]
  - Lacrimation increased [Unknown]
  - Post laminectomy syndrome [Unknown]
  - Hypersomnia [Unknown]
  - Back pain [Not Recovered/Not Resolved]
  - Gastrooesophageal reflux disease [Unknown]
  - Bacterial infection [Unknown]
  - Cough [Unknown]
  - Osteoarthritis [Unknown]
  - Monoclonal gammopathy [Unknown]
  - Squamous cell carcinoma of skin [Unknown]
  - Atelectasis [Recovered/Resolved]
  - Arthrodesis [Unknown]
  - Eye infection bacterial [Unknown]
  - Neuralgia [Unknown]
  - Melanocytic naevus [Unknown]
  - Cataract [Unknown]
  - Postoperative fever [Recovered/Resolved]
  - Device failure [Unknown]
  - Migraine [Unknown]
  - Hypertension [Unknown]

NARRATIVE: CASE EVENT DATE: 2000
